FAERS Safety Report 5875321-6 (Version None)
Quarter: 2008Q3

REPORT INFORMATION
  Report Type: 
  Country: None (occurrence: None)
  Receive Date: 20080909
  Receipt Date: 20080829
  Transmission Date: 20090109
  Serious: Yes (Hospitalization)
  Sender: FDA-Public Use
  Company Number: FR-WYE-H05814608

PATIENT
  Sex: Female

DRUGS (5)
  1. INIPOMP [Suspect]
     Route: 048
  2. MONOCRIXO LP [Suspect]
     Route: 048
  3. ALLOPURINOL [Suspect]
     Route: 048
  4. MELOXICAM [Suspect]
     Route: 048
     Dates: start: 20071101, end: 20080101
  5. LYRICA [Suspect]
     Route: 048
     Dates: start: 20071001, end: 20080101

REACTIONS (1)
  - LEUKOCYTOCLASTIC VASCULITIS [None]
